FAERS Safety Report 6286264-0 (Version None)
Quarter: 2009Q3

REPORT INFORMATION
  Report Type: 
  Country: None (occurrence: None)
  Receive Date: 20090728
  Receipt Date: 20090716
  Transmission Date: 20100115
  Serious: Yes (Hospitalization, Other)
  Sender: FDA-Public Use
  Company Number: CH-PFIZER INC-2009241189

PATIENT

DRUGS (7)
  1. ZITHROMAX [Suspect]
     Dosage: 250 MG, 3X/DAY
     Dates: start: 20080901, end: 20080901
  2. ROACCUTANE [Suspect]
     Dosage: UNK
     Dates: end: 20080130
  3. KALETRA [Suspect]
     Indication: HIV INFECTION
     Dosage: UNK
     Dates: start: 20080603, end: 20081024
  4. COMBIVIR [Suspect]
     Indication: HIV INFECTION
     Dosage: UNK
     Dates: start: 20080603, end: 20081024
  5. CELESTONE [Suspect]
     Dosage: UNK
     Dates: start: 20080901, end: 20080901
  6. AUGMENTIN [Suspect]
     Dosage: 625 MG, 3X/DAY
     Dates: start: 20080901, end: 20080901
  7. MAGNESIOCARD [Concomitant]
     Dosage: 121.5 MG, 3X/DAY

REACTIONS (2)
  - DRUG EXPOSURE DURING PREGNANCY [None]
  - METRORRHAGIA [None]
